FAERS Safety Report 26080361 (Version 2)
Quarter: 2025Q4

REPORT INFORMATION
  Report Type: Spontaneous
  Country: CN (occurrence: CN)
  Receive Date: 20251124
  Receipt Date: 20251128
  Transmission Date: 20260119
  Serious: Yes (Other)
  Sender: GLAXOSMITHKLINE
  Company Number: CN-GSK-CN2025CHI148589

PATIENT
  Age: 32 Year
  Sex: Female
  Weight: 49.9 kg

DRUGS (1)
  1. LAMOTRIGINE [Suspect]
     Active Substance: LAMOTRIGINE
     Indication: Affective disorder
     Dosage: 50 MG, TID

REACTIONS (4)
  - Systemic lupus erythematosus [Recovering/Resolving]
  - Rash [Recovering/Resolving]
  - Condition aggravated [Recovering/Resolving]
  - Affective disorder [Recovering/Resolving]

NARRATIVE: CASE EVENT DATE: 20251101
